FAERS Safety Report 10723692 (Version 1)
Quarter: 2015Q1

REPORT INFORMATION
  Report Type: Spontaneous
  Country: US (occurrence: None)
  Receive Date: 20150114
  Receipt Date: 20150114
  Transmission Date: 20150721
  Serious: Yes (Hospitalization)
  Sender: FDA-Public Use
  Company Number: US2015002542

PATIENT
  Age: 48 Year
  Sex: Male

DRUGS (5)
  1. AZITHROMYCIN [Concomitant]
     Active Substance: AZITHROMYCIN ANHYDROUS
  2. MEPRON (ATOVAQUONE) [Concomitant]
  3. PROTONIX (PROTONIX (NOS)) [Concomitant]
  4. TRIUMEQ [Suspect]
     Active Substance: ABACAVIR SULFATE\DOLUTEGRAVIR SODIUM\LAMIVUDINE
     Indication: HIV INFECTION
     Route: 048
     Dates: start: 201408
  5. LEVALBUTEROL (LEVOSALBUTAMOL) [Concomitant]

REACTIONS (3)
  - Abdominal pain [None]
  - Infection [None]
  - Oral administration complication [None]

NARRATIVE: CASE EVENT DATE: 201408
